FAERS Safety Report 6617089-1 (Version None)
Quarter: 2010Q1

REPORT INFORMATION
  Report Type: 
  Country: None (occurrence: None)
  Receive Date: 20100307
  Receipt Date: 20100222
  Transmission Date: 20100710
  Serious: Yes (Hospitalization, Other)
  Sender: FDA-Public Use
  Company Number: HU-BRISTOL-MYERS SQUIBB COMPANY-14996144

PATIENT
  Age: 21 Year
  Sex: Male

DRUGS (5)
  1. ARIPIPRAZOLE [Suspect]
     Indication: SCHIZOPHRENIA
     Dosage: THERAPY DATES:15DEC09-18JAN10(35DAYS) 19JAN10-ONG.DOSE INCREASED FROM 20MG TO 30MG/DAY-19JAN2010
     Dates: start: 20091215
  2. ZOLPIDEM [Concomitant]
     Dates: start: 20091228
  3. ALPRAZOLAM [Concomitant]
     Dates: start: 20091221, end: 20100209
  4. BIPERIDEN HYDROCHLORIDE TAB [Concomitant]
     Dates: start: 20091221
  5. CLONAZEPAM [Concomitant]
     Dates: start: 20090210

REACTIONS (3)
  - CONDITION AGGRAVATED [None]
  - SCHIZOPHRENIA [None]
  - SUICIDE ATTEMPT [None]
